FAERS Safety Report 26044914 (Version 1)
Quarter: 2025Q4

REPORT INFORMATION
  Report Type: Report from Study
  Country: US (occurrence: US)
  Receive Date: 20251114
  Receipt Date: 20251114
  Transmission Date: 20260118
  Serious: Yes (Death, Other)
  Sender: DAIICHI
  Company Number: US-DSJP-DSU-2024-100285

PATIENT
  Age: 61 Year
  Sex: Female

DRUGS (10)
  1. ENHERTU [Suspect]
     Active Substance: FAM-TRASTUZUMAB DERUXTECAN-NXKI
     Indication: Product used for unknown indication
     Dosage: UNK, ONCE EVERY 3 WK
     Route: 042
     Dates: start: 20231114, end: 20231114
  2. ENHERTU [Suspect]
     Active Substance: FAM-TRASTUZUMAB DERUXTECAN-NXKI
     Dosage: 407 MG, ONCE EVERY 3 WK
     Route: 042
  3. ENHERTU [Suspect]
     Active Substance: FAM-TRASTUZUMAB DERUXTECAN-NXKI
     Dosage: 399.22 MG, ONCE EVERY 3 WK (OVER 30 MINUTES)
     Route: 065
     Dates: start: 20240104, end: 20240104
  4. ENHERTU [Suspect]
     Active Substance: FAM-TRASTUZUMAB DERUXTECAN-NXKI
     Dosage: 325 MG, ONCE EVERY 3 WK
     Route: 065
     Dates: start: 20240111, end: 20240111
  5. ENHERTU [Suspect]
     Active Substance: FAM-TRASTUZUMAB DERUXTECAN-NXKI
     Dosage: 247 MG, ONCE EVERY 3 WK
     Route: 042
     Dates: start: 20240730, end: 20240730
  6. ENHERTU [Suspect]
     Active Substance: FAM-TRASTUZUMAB DERUXTECAN-NXKI
     Dosage: 247 MG
     Route: 042
     Dates: start: 20241114
  7. ENHERTU [Suspect]
     Active Substance: FAM-TRASTUZUMAB DERUXTECAN-NXKI
     Dosage: 348 MG
     Route: 042
     Dates: start: 20231109, end: 20231109
  8. ENHERTU [Suspect]
     Active Substance: FAM-TRASTUZUMAB DERUXTECAN-NXKI
     Dosage: 345 MG, ONCE EVERY 3 WK
     Route: 042
     Dates: start: 20250115, end: 20250115
  9. ENHERTU [Suspect]
     Active Substance: FAM-TRASTUZUMAB DERUXTECAN-NXKI
     Dosage: 429 MG
     Route: 042
     Dates: start: 20250212
  10. ENHERTU [Suspect]
     Active Substance: FAM-TRASTUZUMAB DERUXTECAN-NXKI
     Dosage: 429 MG
     Route: 042
     Dates: start: 20230114, end: 20250402

REACTIONS (1)
  - Death [Fatal]

NARRATIVE: CASE EVENT DATE: 20251112
